FAERS Safety Report 8315423 (Version 3)
Quarter: 2013Q4

REPORT INFORMATION
  Report Type: Report from Study
  Country: US (occurrence: US)
  Receive Date: 20111229
  Receipt Date: 20131104
  Transmission Date: 20140711
  Serious: Yes (Hospitalization)
  Sender: FDA-Public Use
  Company Number: US-UCBSA-047977

PATIENT
  Age: 47 Year
  Sex: Female
  Weight: 101 kg

DRUGS (18)
  1. CIMZIA [Suspect]
     Indication: CROHN^S DISEASE
     Route: 058
     Dates: start: 20090706, end: 201106
  2. PREGABALIN [Concomitant]
     Route: 048
  3. AMITRIPTYLINE [Concomitant]
     Dosage: AT BED TIME
     Route: 048
  4. AMITRIPTYLINE [Concomitant]
     Dosage: AT BED TIME
     Route: 048
  5. AMITRIPTYLINE [Concomitant]
     Dosage: 30 MG 3 TIMES AT BED TIME
     Route: 048
  6. AMITRIPTYLINE [Concomitant]
     Dosage: AT BEDTIME
     Route: 048
  7. VICODIN ES [Concomitant]
     Indication: PAIN
     Dosage: 7.5-750 MG, 1 TABLET EVERY 4 HOURS AS NEEDED, DO NOT EXCEED 5 PILLS A DAY
     Route: 048
  8. BIFERA RX [Concomitant]
     Dosage: 22MG-6MG-1MG-25MCG
     Route: 048
  9. NEXIUM [Concomitant]
     Route: 048
  10. VITAMIN B12 [Concomitant]
     Dosage: 1000 MCG/ML - 1 ML
     Route: 030
  11. K-DUR [Concomitant]
     Indication: ESSENTIAL HYPERTENSION
     Route: 048
  12. LASIX [Concomitant]
     Indication: ESSENTIAL HYPERTENSION
     Route: 048
  13. LOVAZA [Concomitant]
     Route: 048
  14. TRICOR [Concomitant]
     Indication: HYPERLIPIDAEMIA
     Route: 048
  15. CO Q [Concomitant]
     Indication: MIGRAINE
     Dosage: 10 200 MG  -
     Route: 048
  16. LOTREL [Concomitant]
     Dosage: 5-40 MG. 1 TAB, MORNING
     Route: 048
  17. VITAMIN B-2 [Concomitant]
     Indication: MIGRAINE
     Dosage: 100 MG. 2 TAB, TWICE DAILY
  18. LIPITOR [Concomitant]
     Indication: HYPERLIPIDAEMIA

REACTIONS (1)
  - Post procedural infection [Recovered/Resolved]
